FAERS Safety Report 7470831-2 (Version None)
Quarter: 2011Q2

REPORT INFORMATION
  Report Type: 
  Country: None (occurrence: None)
  Receive Date: 20110506
  Receipt Date: 20110506
  Transmission Date: 20111010
  Serious: Yes (Death, Hospitalization)
  Sender: FDA-Public Use
  Company Number: None

PATIENT
  Sex: Male
  Weight: 122 kg

DRUGS (1)
  1. DABIGATRAN 75MG BI [Suspect]
     Indication: ATRIAL FIBRILLATION
     Dosage: 75MG TID PO
     Route: 048
     Dates: start: 20110316, end: 20110329

REACTIONS (9)
  - BLOOD CREATININE INCREASED [None]
  - UNRESPONSIVE TO STIMULI [None]
  - CARDIAC ARREST [None]
  - VENTRICULAR FIBRILLATION [None]
  - ABDOMINAL PAIN [None]
  - HAEMATEMESIS [None]
  - HAEMOPTYSIS [None]
  - LIVER FUNCTION TEST ABNORMAL [None]
  - CYANOSIS [None]
